FAERS Safety Report 8610304-4 (Version None)
Quarter: 2012Q3

REPORT INFORMATION
  Report Type: 
  Country: None (occurrence: None)
  Receive Date: 20120822
  Receipt Date: 20120815
  Transmission Date: 20120928
  Serious: Yes (Hospitalization, Other)
  Sender: FDA-Public Use
  Company Number: PHHY2012ES071920

PATIENT
  Age: 62 Year
  Sex: Female

DRUGS (6)
  1. CYCLOPHOSPHAMIDE [Concomitant]
     Indication: BREAST CANCER
     Dosage: 600 MG/M2, UNK
  2. ANASTROZOLE [Concomitant]
     Indication: HORMONE THERAPY
     Dosage: 1 MG, UNK
  3. DEXAMETHASONE [Suspect]
     Dosage: 16 MG, UNK
  4. CHLORHEXIDINE GLUCONATE [Concomitant]
  5. OMEPRAZOLE [Concomitant]
  6. DOXORUBICIN HCL [Concomitant]
     Indication: BREAST CANCER
     Dosage: 60 MG/M2, UNK

REACTIONS (2)
  - MYOPATHY [None]
  - ACCIDENTAL OVERDOSE [None]
